FAERS Safety Report 13468773 (Version 1)
Quarter: 2017Q2

REPORT INFORMATION
  Report Type: Report from Study
  Country: HU (occurrence: HU)
  Receive Date: 20170421
  Receipt Date: 20170421
  Transmission Date: 20170830
  Serious: Yes (Death, Hospitalization)
  Sender: FDA-Public Use
  Company Number: HU-JNJFOC-20170419586

PATIENT
  Age: 76 Year
  Sex: Female
  Weight: 101 kg

DRUGS (6)
  1. STELARA [Suspect]
     Active Substance: USTEKINUMAB
     Indication: PSORIASIS
     Route: 058
     Dates: start: 20141003
  2. L-THYROXIN [Concomitant]
     Active Substance: LEVOTHYROXINE SODIUM
     Route: 065
  3. NITROMINT [Concomitant]
     Dosage: MORNING -AFTERNOON
     Route: 065
  4. LAVESTRA [Concomitant]
     Dosage: MORNING
     Route: 065
  5. STELARA [Suspect]
     Active Substance: USTEKINUMAB
     Indication: PSORIASIS
     Route: 058
     Dates: start: 20150715, end: 20170223
  6. ISOPTIN [Concomitant]
     Active Substance: VERAPAMIL HYDROCHLORIDE
     Dosage: MORNING
     Route: 065

REACTIONS (2)
  - Metastases to lung [Fatal]
  - Adrenomegaly [Unknown]

NARRATIVE: CASE EVENT DATE: 20170408
